FAERS Safety Report 8862071 (Version 3)
Quarter: 2012Q4

REPORT INFORMATION
  Report Type: 
  Country: JP (occurrence: JP)
  Receive Date: 20121026
  Receipt Date: 20121126
  Transmission Date: 20130627
  Serious: Yes (Hospitalization)
  Sender: FDA-Public Use
  Company Number: JP-ELI_LILLY_AND_COMPANY-JP201210000005

PATIENT
  Age: 73 Year
  Sex: Male
  Weight: 63.5 kg

DRUGS (4)
  1. ALIMTA [Suspect]
     Indication: LUNG ADENOCARCINOMA STAGE IV
     Dosage: 830 mg, UNK
     Route: 042
     Dates: start: 20120914, end: 20120914
  2. DECADRAN                           /00016001/ [Concomitant]
     Indication: PROPHYLAXIS
     Dosage: UNK
     Route: 042
     Dates: start: 20120914, end: 20120914
  3. GRANISETRON                        /01178102/ [Concomitant]
     Indication: PROPHYLAXIS
     Dosage: UNK
     Route: 042
     Dates: start: 20120914, end: 20120914
  4. PANVITAN [Concomitant]
     Dosage: UNK
     Route: 048
     Dates: start: 20120904, end: 20121018

REACTIONS (7)
  - Disseminated intravascular coagulation [Recovering/Resolving]
  - Staphylococcal bacteraemia [Recovering/Resolving]
  - Rash [Recovering/Resolving]
  - Febrile neutropenia [Recovering/Resolving]
  - White blood cell count decreased [Recovering/Resolving]
  - Platelet count decreased [Recovering/Resolving]
  - Off label use [Recovered/Resolved]
